FAERS Safety Report 7198359-8 (Version None)
Quarter: 2010Q4

REPORT INFORMATION
  Report Type: 
  Country: None (occurrence: None)
  Receive Date: 20101227
  Receipt Date: 20101217
  Transmission Date: 20110411
  Serious: No
  Sender: FDA-Public Use
  Company Number: US-JNJFOC-20101207404

PATIENT
  Sex: Female
  Weight: 70.31 kg

DRUGS (10)
  1. FENTANYL-100 [Suspect]
     Indication: FIBROMYALGIA
     Route: 062
  2. FENTANYL-100 [Suspect]
     Route: 062
  3. FENTANYL-100 [Suspect]
     Route: 062
  4. FENTANYL-100 [Suspect]
     Indication: RHEUMATOID ARTHRITIS
     Route: 062
  5. FENTANYL-100 [Suspect]
     Route: 062
  6. FENTANYL-100 [Suspect]
     Route: 062
  7. BONIVA [Concomitant]
     Indication: OSTEOPENIA
  8. CIMZIA [Concomitant]
     Indication: RHEUMATOID ARTHRITIS
  9. LYRICA [Concomitant]
     Indication: FIBROMYALGIA
  10. PREDNISONE [Concomitant]

REACTIONS (3)
  - DRUG ADMINISTERED AT INAPPROPRIATE SITE [None]
  - HEART RATE INCREASED [None]
  - PRODUCT ADHESION ISSUE [None]
